FAERS Safety Report 13099693 (Version 1)
Quarter: 2017Q1

REPORT INFORMATION
  Report Type: Report from Study
  Country: None (occurrence: BR)
  Receive Date: 20170110
  Receipt Date: 20170110
  Transmission Date: 20170428
  Serious: Yes (Disabling, Other)
  Sender: FDA-Public Use
  Company Number: BR-ABBVIE-17K-020-1829829-00

PATIENT
  Age: 47 Year
  Sex: Female
  Weight: 74 kg

DRUGS (4)
  1. COLLAGEN [Concomitant]
     Active Substance: COLLAGEN
     Indication: ARTHROPATHY
     Route: 048
  2. HUMIRA [Suspect]
     Active Substance: ADALIMUMAB
     Indication: ANKYLOSING SPONDYLITIS
     Route: 058
     Dates: start: 20150305
  3. VELIJA [Suspect]
     Active Substance: DULOXETINE HYDROCHLORIDE
     Indication: PAIN
     Route: 048
  4. COLLAGEN [Concomitant]
     Active Substance: COLLAGEN
     Indication: MULTI-ORGAN DISORDER

REACTIONS (20)
  - Dust allergy [Recovering/Resolving]
  - Emotional disorder [Unknown]
  - Bedridden [Recovered/Resolved]
  - Rash papular [Recovering/Resolving]
  - Influenza [Recovered/Resolved]
  - Cough [Recovering/Resolving]
  - Spinal pain [Recovered/Resolved]
  - Dysstasia [Recovered/Resolved]
  - Abasia [Recovered/Resolved]
  - Ankylosing spondylitis [Recovered/Resolved]
  - Dizziness [Recovered/Resolved]
  - Haemorrhoids [Recovered/Resolved]
  - Secretion discharge [Recovered/Resolved]
  - Loss of bladder sensation [Recovered/Resolved]
  - Secretion discharge [Recovering/Resolving]
  - Micturition urgency [Recovered/Resolved]
  - Insomnia [Unknown]
  - Nausea [Recovered/Resolved]
  - Urinary tract infection [Recovered/Resolved]
  - Spinal pain [Not Recovered/Not Resolved]

NARRATIVE: CASE EVENT DATE: 201601
